FAERS Safety Report 15547080 (Version 2)
Quarter: 2018Q4

REPORT INFORMATION
  Report Type: Spontaneous
  Country: US (occurrence: US)
  Receive Date: 20181024
  Receipt Date: 20181026
  Transmission Date: 20190205
  Serious: Yes (Hospitalization)
  Sender: FDA-Public Use
  Company Number: US-FRESENIUS MEDICAL CARE RENAL THERAPIES GROUP-FMC-1810-001866

PATIENT
  Age: 43 Year
  Sex: Female

DRUGS (22)
  1. INSULIN ASPART [Concomitant]
     Active Substance: INSULIN ASPART
  2. ALBUTEROL. [Concomitant]
     Active Substance: ALBUTEROL
  3. VALSARTAN. [Concomitant]
     Active Substance: VALSARTAN
  4. SYNTHROID [Concomitant]
     Active Substance: LEVOTHYROXINE SODIUM
  5. NORVASC [Concomitant]
     Active Substance: AMLODIPINE BESYLATE
  6. PROTONIX [Concomitant]
     Active Substance: PANTOPRAZOLE SODIUM
  7. CALCIUM [Concomitant]
     Active Substance: CALCIUM
  8. SEVELAMER [Concomitant]
     Active Substance: SEVELAMER
  9. IMITREX [Concomitant]
     Active Substance: SUMATRIPTAN SUCCINATE
  10. COREG [Concomitant]
     Active Substance: CARVEDILOL
  11. DELFLEX WITH DEXTROSE 2.5% LOW MAGNESIUM LOW CALCIUM [Suspect]
     Active Substance: CALCIUM CHLORIDE\DEXTROSE\MAGNESIUM CHLORIDE\SODIUM CHLORIDE\SODIUM LACTATE
     Indication: END STAGE RENAL DISEASE
     Route: 033
  12. DELFLEX WITH DEXTROSE 4.25% LOW MAGNESIUM LOW CALCIUM [Suspect]
     Active Substance: CALCIUM CHLORIDE\DEXTROSE\MAGNESIUM CHLORIDE\SODIUM CHLORIDE\SODIUM LACTATE
     Indication: END STAGE RENAL DISEASE
     Route: 033
  13. COLESEVELAM [Concomitant]
     Active Substance: COLESEVELAM
  14. ZOFRAN [Concomitant]
     Active Substance: ONDANSETRON HYDROCHLORIDE
  15. CARAFATE [Concomitant]
     Active Substance: SUCRALFATE
  16. LANTUS [Concomitant]
     Active Substance: INSULIN GLARGINE
  17. CALCITRIOL. [Concomitant]
     Active Substance: CALCITRIOL
  18. NORTRIPTYLINE [Concomitant]
     Active Substance: NORTRIPTYLINE
  19. BENADRYL [Concomitant]
     Active Substance: DIPHENHYDRAMINE HYDROCHLORIDE
  20. BENZONATATE. [Concomitant]
     Active Substance: BENZONATATE
  21. LIQUACEL [Concomitant]
  22. DEMADEX [Concomitant]
     Active Substance: TORSEMIDE

REACTIONS (1)
  - Blood glucose fluctuation [Recovering/Resolving]

NARRATIVE: CASE EVENT DATE: 20180922
